FAERS Safety Report 5387936-2 (Version None)
Quarter: 2007Q3

REPORT INFORMATION
  Report Type: 
  Country: None (occurrence: None)
  Receive Date: 20070716
  Receipt Date: 20060915
  Transmission Date: 20080115
  Serious: No
  Sender: FDA-Public Use
  Company Number: A0620153A

PATIENT
  Age: 58 Year
  Sex: Male

DRUGS (1)
  1. NICORETTE (MINT) [Suspect]
     Dates: start: 20060910, end: 20060913

REACTIONS (4)
  - COLD SWEAT [None]
  - DIZZINESS [None]
  - HEART RATE INCREASED [None]
  - MALAISE [None]
